FAERS Safety Report 4542811-8 (Version None)
Quarter: 2004Q4

REPORT INFORMATION
  Report Type: 
  Country: None (occurrence: None)
  Receive Date: 20041229
  Receipt Date: 20041213
  Transmission Date: 20050328
  Serious: Yes (Hospitalization, Other)
  Sender: FDA-Public Use
  Company Number: 2004-05235

PATIENT
  Age: 54 Year
  Sex: Female
  Weight: 89.8 kg

DRUGS (7)
  1. METRONIDAZOLE [Suspect]
     Indication: COLITIS
     Dosage: 1 TABLET, TID, ORAL
     Route: 048
     Dates: start: 20040801, end: 20040801
  2. METRONIDAZOLE [Suspect]
     Indication: DIVERTICULUM
     Dosage: 1 TABLET, TID, ORAL
     Route: 048
     Dates: start: 20040801, end: 20040801
  3. METRONIDAZOLE [Suspect]
     Indication: COLITIS
     Dosage: 1 TABLET, TID, ORAL
     Route: 048
     Dates: start: 20040901, end: 20041001
  4. METRONIDAZOLE [Suspect]
     Indication: DIVERTICULUM
     Dosage: 1 TABLET, TID, ORAL
     Route: 048
     Dates: start: 20040901, end: 20041001
  5. PROZAC (FLOXETINE HYDROCHLORIEDE) [Concomitant]
  6. LEVAQUIN [Concomitant]
  7. MULTIVITAMINS (ERGOCALCIFEROL, THIAMINE HYDROCHLORIDCE, RETINOL, RIBOF [Concomitant]

REACTIONS (4)
  - ARTHRALGIA [None]
  - BACK PAIN [None]
  - DIVERTICULUM [None]
  - NEUROPATHY PERIPHERAL [None]
